FAERS Safety Report 4891091-2 (Version None)
Quarter: 2006Q1

REPORT INFORMATION
  Report Type: 
  Country: None (occurrence: None)
  Receive Date: 20060125
  Receipt Date: 20050920
  Transmission Date: 20060701
  Serious: Yes (Hospitalization)
  Sender: FDA-Public Use
  Company Number: US-MERCK-0509USA03116

PATIENT
  Age: 69 Year
  Sex: Female
  Weight: 86 kg

DRUGS (7)
  1. VIOXX [Suspect]
     Indication: ARTHRITIS
     Route: 048
     Dates: start: 20010611, end: 20040901
  2. VIOXX [Suspect]
     Indication: FIBROMYALGIA
     Route: 048
     Dates: start: 20010611, end: 20040901
  3. PLENDIL [Concomitant]
     Indication: HYPERTENSION
     Route: 048
     Dates: start: 20011201, end: 20031101
  4. HYDROCODONE BITARTRATE [Concomitant]
     Indication: PAIN
     Route: 065
     Dates: start: 20030402, end: 20030501
  5. PRINIVIL [Concomitant]
     Indication: HYPERTENSION
     Route: 048
     Dates: start: 20010402, end: 20010701
  6. DYAZIDE [Concomitant]
     Route: 065
     Dates: start: 20010712
  7. LIPITOR [Concomitant]
     Indication: BLOOD CHOLESTEROL INCREASED
     Route: 065
     Dates: start: 20030101

REACTIONS (15)
  - ACUTE MYOCARDIAL INFARCTION [None]
  - AORTIC VALVE INCOMPETENCE [None]
  - BLOOD CHOLESTEROL INCREASED [None]
  - CARDIAC VALVE DISEASE [None]
  - CAROTID ARTERY STENOSIS [None]
  - CORONARY ARTERY DISEASE [None]
  - CORONARY ARTERY OCCLUSION [None]
  - DRUG INTOLERANCE [None]
  - ELECTROCARDIOGRAM Q WAVES [None]
  - ELECTROCARDIOGRAM ST SEGMENT ELEVATION [None]
  - ELECTROCARDIOGRAM T WAVE ABNORMAL [None]
  - HYPERTENSION [None]
  - MYALGIA [None]
  - OSTEOARTHRITIS [None]
  - VENTRICULAR HYPOKINESIA [None]
